FAERS Safety Report 5999997-8 (Version None)
Quarter: 2008Q4

REPORT INFORMATION
  Report Type: 
  Country: None (occurrence: None)
  Receive Date: 20081211
  Receipt Date: 20080724
  Transmission Date: 20090506
  Serious: No
  Sender: FDA-Public Use
  Company Number: US024190

PATIENT
  Age: 76 Year
  Sex: Male
  Weight: 86.1834 kg

DRUGS (8)
  1. TREANDA [Suspect]
     Indication: CHRONIC LEUKAEMIA
     Dosage: 100 MG/M2 200MG DOSE DAY 1-8 EVERY 28 DAYS TIMES 4 CYCLES INTRAVENOUS
     Route: 042
     Dates: start: 20080522
  2. CRESTOR [Concomitant]
  3. ALLOPURINOL [Concomitant]
  4. ARANESP [Concomitant]
  5. LOPRESSOR [Concomitant]
  6. LOTREL [Concomitant]
  7. ASPIRIN [Concomitant]
  8. ENUVIA [Concomitant]

REACTIONS (2)
  - DERMATITIS BULLOUS [None]
  - OEDEMA PERIPHERAL [None]
